FAERS Safety Report 9055234 (Version 3)
Quarter: 2013Q2

REPORT INFORMATION
  Report Type: Spontaneous
  Country: US (occurrence: US)
  Receive Date: 20130206
  Receipt Date: 20130503
  Transmission Date: 20140414
  Serious: No
  Sender: FDA-Public Use
  Company Number: US-009507513-1302USA001007

PATIENT
  Age: 19 Year
  Sex: Female
  Weight: 87.98 kg

DRUGS (1)
  1. IMPLANON [Suspect]
     Indication: CONTRACEPTION
     Dosage: UNK
     Dates: start: 201002, end: 20130218

REACTIONS (3)
  - Incorrect drug administration duration [Unknown]
  - Medical device complication [Recovered/Resolved]
  - No adverse event [Unknown]
